FAERS Safety Report 7271442-4 (Version None)
Quarter: 2011Q1

REPORT INFORMATION
  Report Type: 
  Country: None (occurrence: None)
  Receive Date: 20110203
  Receipt Date: 20110124
  Transmission Date: 20110831
  Serious: No
  Sender: FDA-Public Use
  Company Number: US-BIOGENIDEC-2011BI003472

PATIENT
  Sex: Female

DRUGS (2)
  1. AVONEX [Suspect]
     Indication: MULTIPLE SCLEROSIS
     Route: 030
     Dates: start: 20080317
  2. AVONEX [Suspect]
     Route: 030
     Dates: start: 19971001, end: 19971001

REACTIONS (2)
  - ASTHMA [None]
  - IMPAIRED GASTRIC EMPTYING [None]
